FAERS Safety Report 7904713-6 (Version None)
Quarter: 2011Q4

REPORT INFORMATION
  Report Type: 
  Country: None (occurrence: None)
  Receive Date: 20111109
  Receipt Date: 20111031
  Transmission Date: 20120403
  Serious: Yes (Hospitalization, Other)
  Sender: FDA-Public Use
  Company Number: IN-GLAXOSMITHKLINE-B0761405A

PATIENT
  Age: 65 Year
  Sex: Male
  Weight: 74 kg

DRUGS (7)
  1. RANITIDINE [Suspect]
     Route: 042
  2. AMLODIPINE [Concomitant]
     Indication: HYPERTENSION
     Route: 048
  3. UNSPECIFIED MEDICATION [Concomitant]
     Route: 048
  4. METFORMIN HCL [Concomitant]
     Indication: DIABETES MELLITUS
     Route: 048
  5. GLYCERYLTRINITRATE [Concomitant]
     Route: 048
  6. LOSARTAN WITH HYDROCHLOROTHIAZIDE [Concomitant]
     Indication: HYPERTENSION
     Route: 048
  7. EPIDURAL [Concomitant]
     Route: 065

REACTIONS (10)
  - DEPRESSED LEVEL OF CONSCIOUSNESS [None]
  - SOMNOLENCE [None]
  - METABOLIC ACIDOSIS [None]
  - BRADYCARDIA [None]
  - CARDIOPULMONARY FAILURE [None]
  - DYSPNOEA [None]
  - RHONCHI [None]
  - ANAPHYLACTIC REACTION [None]
  - HYPOTENSION [None]
  - HYPOXIA [None]
